FAERS Safety Report 4652060-0 (Version None)
Quarter: 2005Q2

REPORT INFORMATION
  Report Type: 
  Country: None (occurrence: None)
  Receive Date: 20050408
  Receipt Date: 20041229
  Transmission Date: 20051028
  Serious: No
  Sender: FDA-Public Use
  Company Number: 235731K04USA

PATIENT
  Age: 46 Year
  Sex: Female
  Weight: 63.05 kg

DRUGS (1)
  1. REBIF [Suspect]
     Indication: MULTIPLE SCLEROSIS
     Dosage: 44 MCG, 3 IN 1 WEEKS, SUBCUATANEOUS
     Route: 058
     Dates: start: 20040708

REACTIONS (9)
  - ALOPECIA [None]
  - CONTUSION [None]
  - DYSARTHRIA [None]
  - EPISTAXIS [None]
  - GOITRE [None]
  - INJECTION SITE ERYTHEMA [None]
  - PAIN IN EXTREMITY [None]
  - THYROID NEOPLASM [None]
  - WEIGHT DECREASED [None]
